FAERS Safety Report 8259351-5 (Version None)
Quarter: 2012Q2

REPORT INFORMATION
  Report Type: 
  Country: None (occurrence: None)
  Receive Date: 20120404
  Receipt Date: 20120326
  Transmission Date: 20120825
  Serious: Yes (Hospitalization)
  Sender: FDA-Public Use
  Company Number: US-ASTRAZENECA-2011SE71079

PATIENT
  Age: 62 Year
  Sex: Female

DRUGS (1)
  1. CRESTOR [Suspect]
     Indication: BLOOD CHOLESTEROL
     Route: 048

REACTIONS (10)
  - IMPAIRED DRIVING ABILITY [None]
  - THYROID CANCER [None]
  - NERVE INJURY [None]
  - GAIT DISTURBANCE [None]
  - MALIGNANT MELANOMA [None]
  - FATIGUE [None]
  - MALAISE [None]
  - BREAST CANCER [None]
  - HYPOAESTHESIA [None]
  - INCORRECT DOSE ADMINISTERED [None]
